FAERS Safety Report 12208017 (Version 2)
Quarter: 2016Q2

REPORT INFORMATION
  Report Type: Spontaneous
  Country: US (occurrence: US)
  Receive Date: 20160324
  Receipt Date: 20160527
  Transmission Date: 20160815
  Serious: Yes (Death, Life-Threatening, Hospitalization, Other)
  Sender: FDA-Public Use
  Company Number: US-JNJFOC-20160314253

PATIENT
  Age: 46 Year
  Sex: Male

DRUGS (19)
  1. COUMADIN [Suspect]
     Active Substance: WARFARIN SODIUM
     Indication: DEEP VEIN THROMBOSIS
     Route: 048
     Dates: start: 20140415, end: 201404
  2. COUMADIN [Suspect]
     Active Substance: WARFARIN SODIUM
     Indication: DEEP VEIN THROMBOSIS
     Route: 048
     Dates: start: 2000, end: 20140402
  3. XARELTO [Suspect]
     Active Substance: RIVAROXABAN
     Indication: ANTIPHOSPHOLIPID ANTIBODIES POSITIVE
     Route: 048
     Dates: start: 20140402, end: 201404
  4. XARELTO [Suspect]
     Active Substance: RIVAROXABAN
     Indication: DEEP VEIN THROMBOSIS
     Route: 048
     Dates: start: 20140402, end: 201404
  5. COUMADIN [Suspect]
     Active Substance: WARFARIN SODIUM
     Indication: HYPERCOAGULATION
     Route: 048
     Dates: start: 20140415, end: 201404
  6. COUMADIN [Suspect]
     Active Substance: WARFARIN SODIUM
     Indication: HYPERCOAGULATION
     Route: 048
     Dates: start: 2000, end: 20140402
  7. ARGATROBAN. [Suspect]
     Active Substance: ARGATROBAN
     Indication: ANTICOAGULANT THERAPY
     Route: 065
  8. XARELTO [Suspect]
     Active Substance: RIVAROXABAN
     Indication: HYPERCOAGULATION
     Route: 048
     Dates: start: 20140402, end: 201404
  9. COUMADIN [Suspect]
     Active Substance: WARFARIN SODIUM
     Indication: STICKY PLATELET SYNDROME
     Route: 048
     Dates: start: 201406, end: 20140706
  10. COUMADIN [Suspect]
     Active Substance: WARFARIN SODIUM
     Indication: STICKY PLATELET SYNDROME
     Route: 048
     Dates: start: 20140415, end: 201404
  11. COUMADIN [Suspect]
     Active Substance: WARFARIN SODIUM
     Indication: STICKY PLATELET SYNDROME
     Route: 048
     Dates: start: 2000, end: 20140402
  12. COUMADIN [Suspect]
     Active Substance: WARFARIN SODIUM
     Indication: HYPERCOAGULATION
     Route: 048
     Dates: start: 201406, end: 20140706
  13. COUMADIN [Suspect]
     Active Substance: WARFARIN SODIUM
     Indication: ANTIPHOSPHOLIPID ANTIBODIES POSITIVE
     Route: 048
     Dates: start: 2000, end: 20140402
  14. LOVENOX [Suspect]
     Active Substance: ENOXAPARIN SODIUM
     Indication: ANTICOAGULANT THERAPY
     Route: 065
     Dates: start: 201404, end: 2014
  15. XARELTO [Suspect]
     Active Substance: RIVAROXABAN
     Indication: STICKY PLATELET SYNDROME
     Route: 048
     Dates: start: 20140402, end: 201404
  16. COUMADIN [Suspect]
     Active Substance: WARFARIN SODIUM
     Indication: ANTIPHOSPHOLIPID ANTIBODIES POSITIVE
     Route: 048
     Dates: start: 201406, end: 20140706
  17. COUMADIN [Suspect]
     Active Substance: WARFARIN SODIUM
     Indication: ANTIPHOSPHOLIPID ANTIBODIES POSITIVE
     Route: 048
     Dates: start: 20140415, end: 201404
  18. COUMADIN [Suspect]
     Active Substance: WARFARIN SODIUM
     Indication: DEEP VEIN THROMBOSIS
     Route: 048
     Dates: start: 201406, end: 20140706
  19. HEPARIN [Suspect]
     Active Substance: HEPARIN SODIUM
     Indication: PRODUCT USED FOR UNKNOWN INDICATION
     Route: 065

REACTIONS (25)
  - Renal failure [Fatal]
  - Cellulitis [Recovered/Resolved]
  - Heparin-induced thrombocytopenia [Unknown]
  - Respiratory failure [Unknown]
  - Congestive cardiomyopathy [Fatal]
  - Ascites [Unknown]
  - Transient ischaemic attack [Unknown]
  - Haemoptysis [Unknown]
  - Pneumonia [Unknown]
  - Internal haemorrhage [Unknown]
  - Ischaemic stroke [Unknown]
  - Peritonitis bacterial [Unknown]
  - Hyponatraemia [Unknown]
  - Pleural effusion [Unknown]
  - Thrombosis [Unknown]
  - Hepatic haemorrhage [Unknown]
  - Abdominal abscess [Fatal]
  - Pulmonary embolism [Unknown]
  - Septic shock [Fatal]
  - Adrenal haemorrhage [Unknown]
  - Pulmonary oedema [Unknown]
  - Leukopenia [Unknown]
  - Fungaemia [Unknown]
  - Generalised oedema [Unknown]
  - Pancreatitis haemorrhagic [Fatal]

NARRATIVE: CASE EVENT DATE: 2014
